FAERS Safety Report 14879163 (Version 1)
Quarter: 2018Q2

REPORT INFORMATION
  Report Type: Spontaneous
  Country: IT (occurrence: IT)
  Receive Date: 20180511
  Receipt Date: 20180511
  Transmission Date: 20180711
  Serious: Yes (Life-Threatening)
  Sender: FDA-Public Use
  Company Number: PHHY2018IT003443

PATIENT
  Age: 89 Year
  Sex: Female
  Weight: 41 kg

DRUGS (2)
  1. MEROPENEM. [Suspect]
     Active Substance: MEROPENEM
     Indication: PNEUMONITIS
     Dosage: 1 G, QD
     Route: 065
  2. TIGECYCLINE. [Suspect]
     Active Substance: TIGECYCLINE
     Indication: PNEUMONITIS
     Dosage: 10 UG, QD
     Route: 041

REACTIONS (3)
  - Acute hepatic failure [Recovering/Resolving]
  - Blood fibrinogen decreased [Recovering/Resolving]
  - Haematoma [Recovering/Resolving]

NARRATIVE: CASE EVENT DATE: 20180205
